FAERS Safety Report 5504509-9 (Version None)
Quarter: 2007Q4

REPORT INFORMATION
  Report Type: 
  Country: None (occurrence: None)
  Receive Date: 20071031
  Receipt Date: 20071015
  Transmission Date: 20080405
  Serious: No
  Sender: FDA-Public Use
  Company Number: 805#1#2007-00053

PATIENT
  Age: 75 Year
  Sex: Male

DRUGS (3)
  1. ALPROSTADIL [Suspect]
     Indication: DIABETIC GANGRENE
     Dosage: 60 MCG
     Route: 041
     Dates: start: 20070919, end: 20071003
  2. CEFAZOLIN SODIUM [Concomitant]
  3. VANCOMYCIN [Concomitant]

REACTIONS (1)
  - PULMONARY OEDEMA [None]
